FAERS Safety Report 11416085 (Version 1)
Quarter: 2015Q3

REPORT INFORMATION
  Report Type: Spontaneous
  Country: US (occurrence: US)
  Receive Date: 20150825
  Receipt Date: 20150825
  Transmission Date: 20151125
  Serious: No
  Sender: FDA-Public Use
  Company Number: US-TEVA-535612USA

PATIENT
  Sex: Male
  Weight: 81.63 kg

DRUGS (5)
  1. FEXOFENADINE [Suspect]
     Active Substance: FEXOFENADINE\FEXOFENADINE HYDROCHLORIDE
     Indication: RHINORRHOEA
     Dosage: 180 MILLIGRAM DAILY;
     Route: 048
     Dates: start: 20150109, end: 20150114
  2. PREDNISONE. [Concomitant]
     Active Substance: PREDNISONE
     Dates: start: 2010
  3. FEXOFENADINE [Suspect]
     Active Substance: FEXOFENADINE\FEXOFENADINE HYDROCHLORIDE
     Dosage: HALF TABLET DAILY
     Route: 048
     Dates: start: 20150115
  4. VITAMINS NOS [Concomitant]
     Active Substance: VITAMINS
     Dates: start: 2000
  5. IPRATROPIUM BROMIDE. [Concomitant]
     Active Substance: IPRATROPIUM BROMIDE
     Dates: start: 2013

REACTIONS (5)
  - Thirst [Recovered/Resolved]
  - Nasal dryness [Recovered/Resolved]
  - Underdose [Unknown]
  - Dry throat [Recovered/Resolved]
  - Wrong technique in product usage process [Unknown]

NARRATIVE: CASE EVENT DATE: 20150109
